FAERS Safety Report 4895152-3 (Version None)
Quarter: 2006Q1

REPORT INFORMATION
  Report Type: 
  Country: None (occurrence: None)
  Receive Date: 20060130
  Receipt Date: 20060119
  Transmission Date: 20060701
  Serious: Yes (Other)
  Sender: FDA-Public Use
  Company Number: PHBS2006FI01202

PATIENT
  Age: 65 Year
  Sex: Male

DRUGS (5)
  1. ZOMETA [Suspect]
     Dosage: EVERY 4 WEEKS
     Dates: start: 20041001, end: 20051221
  2. RADIOTHERAPY [Concomitant]
     Dosage: 5 TIMES 2 GY AT AREA OF JAW
     Dates: start: 20050601
  3. ZOLADEX [Concomitant]
     Route: 065
  4. CASODEX [Concomitant]
     Route: 065
  5. ESTRACYT [Concomitant]
     Indication: PROSTATIC SPECIFIC ANTIGEN INCREASED
     Route: 065
     Dates: start: 20020401

REACTIONS (4)
  - GINGIVAL PAIN [None]
  - OSTEONECROSIS [None]
  - PAIN IN JAW [None]
  - RADIATION INJURY [None]
